FAERS Safety Report 5050389-8 (Version None)
Quarter: 2006Q3

REPORT INFORMATION
  Report Type: 
  Country: None (occurrence: None)
  Receive Date: 20060707
  Receipt Date: 20060623
  Transmission Date: 20061208
  Serious: Yes (Hospitalization)
  Sender: FDA-Public Use
  Company Number: 200610578BFR

PATIENT
  Age: 64 Year
  Sex: Male
  Weight: 45 kg

DRUGS (8)
  1. SORAFENIB [Suspect]
     Indication: RENAL CELL CARCINOMA STAGE UNSPECIFIED
     Dosage: 400 MG, ORAL
     Route: 048
     Dates: end: 20060420
  2. LEXOMIL [Concomitant]
  3. IMOVANE [Concomitant]
  4. ATHYMIL [Concomitant]
  5. GLUCOPHAGE [Concomitant]
  6. LANTUS [Concomitant]
  7. ACETAMINOPHEN [Concomitant]
  8. FERROUS SULFATE TAB [Concomitant]

REACTIONS (2)
  - DISEASE PROGRESSION [None]
  - GENERAL PHYSICAL HEALTH DETERIORATION [None]
